FAERS Safety Report 4986807-0 (Version None)
Quarter: 2006Q2

REPORT INFORMATION
  Report Type: 
  Country: None (occurrence: None)
  Receive Date: 20060428
  Receipt Date: 20050926
  Transmission Date: 20061013
  Serious: Yes (Hospitalization)
  Sender: FDA-Public Use
  Company Number: US-MERCK-0509USA04143

PATIENT
  Age: 63 Year
  Sex: Female
  Weight: 84 kg

DRUGS (4)
  1. VIOXX [Suspect]
     Indication: ARTHRALGIA
     Route: 048
     Dates: end: 20040101
  2. VIOXX [Suspect]
     Route: 048
     Dates: start: 20020501, end: 20020504
  3. VIOXX [Suspect]
     Route: 048
     Dates: start: 20020505
  4. NORVASC [Suspect]
     Route: 065

REACTIONS (11)
  - DEPRESSION [None]
  - DYSPNOEA [None]
  - FLAT FEET [None]
  - HYPERTENSION [None]
  - IMMUNE SYSTEM DISORDER [None]
  - INFECTION [None]
  - MYOCARDIAL INFARCTION [None]
  - OEDEMA PERIPHERAL [None]
  - RHEUMATOID ARTHRITIS [None]
  - SINUSITIS [None]
  - SLEEP DISORDER [None]
